FAERS Safety Report 15617583 (Version 1)
Quarter: 2018Q4

REPORT INFORMATION
  Report Type: Spontaneous
  Country: US (occurrence: US)
  Receive Date: 20181114
  Receipt Date: 20181114
  Transmission Date: 20190205
  Serious: Yes (Other)
  Sender: FDA-Public Use
  Company Number: None

PATIENT
  Age: 68 Year
  Sex: Male
  Weight: 108.6 kg

DRUGS (1)
  1. RITUXAN [Suspect]
     Active Substance: RITUXIMAB
     Indication: MANTLE CELL LYMPHOMA
     Dosage: 851 MG EVERY 28 DAYS; INTRAVENOUS DRIP?
     Route: 041
     Dates: start: 20181113, end: 20181113

REACTIONS (1)
  - Chills [None]

NARRATIVE: CASE EVENT DATE: 20181113
